FAERS Safety Report 5751083-8 (Version None)
Quarter: 2008Q2

REPORT INFORMATION
  Report Type: 
  Country: None (occurrence: None)
  Receive Date: 20080528
  Receipt Date: 20080519
  Transmission Date: 20081010
  Serious: Yes (Other)
  Sender: FDA-Public Use
  Company Number: JO-WATSON-2008-03233

PATIENT
  Age: 35 Year
  Sex: Female

DRUGS (1)
  1. TRELSTAR DEPOT (WITH CLIP'N'JECT) (WATSON LABORATORIES) [Suspect]
     Indication: INFERTILITY
     Dosage: 3.75 MG, UNKNOWN
     Route: 065

REACTIONS (1)
  - OVARIAN HYPERSTIMULATION SYNDROME [None]
